FAERS Safety Report 8141256-1 (Version None)
Quarter: 2012Q1

REPORT INFORMATION
  Report Type: 
  Country: None (occurrence: None)
  Receive Date: 20120103
  Receipt Date: 20110919
  Transmission Date: 20120608
  Serious: No
  Sender: FDA-Public Use
  Company Number: AE-2011-001656

PATIENT
  Age: 56 Year
  Sex: Male
  Weight: 113.3993 kg

DRUGS (7)
  1. INCIVEK [Suspect]
     Dosage: 2250 MG (750 MG, 3 IN 1 D), ORAL
     Route: 048
     Dates: start: 20110731
  2. PEGASYS [Concomitant]
  3. LISINOPRIL [Concomitant]
  4. KLONOPIN [Concomitant]
  5. RIBAVIRIN [Concomitant]
  6. RESTORIL [Concomitant]
  7. HYDROCODONE 10/325MG (HYDROCODONE) [Concomitant]

REACTIONS (5)
  - NAIL DISORDER [None]
  - ABDOMINAL DISCOMFORT [None]
  - WEIGHT INCREASED [None]
  - SKIN DISORDER [None]
  - PAIN [None]
